FAERS Safety Report 19110520 (Version 1)
Quarter: 2021Q2

REPORT INFORMATION
  Report Type: Spontaneous
  Country: ES (occurrence: ES)
  Receive Date: 20210408
  Receipt Date: 20210408
  Transmission Date: 20210717
  Serious: Yes (Other)
  Sender: FDA-Public Use
  Company Number: NVSC2021ES073371

PATIENT
  Age: 60 Year
  Sex: Male
  Weight: 55 kg

DRUGS (1)
  1. METFORMIN [Suspect]
     Active Substance: METFORMIN HYDROCHLORIDE
     Indication: DIABETES MELLITUS
     Dosage: 850 MG, Q12H (COMPRIMIDOS RECUBIERTOS CON PELICULA EFG, 50 COMPRIMIDOS)
     Route: 048
     Dates: start: 20201225

REACTIONS (1)
  - Abnormal loss of weight [Not Recovered/Not Resolved]

NARRATIVE: CASE EVENT DATE: 20201225
